FAERS Safety Report 8476454 (Version 12)
Quarter: 2015Q2

REPORT INFORMATION
  Report Type: Report from Study
  Country: AT (occurrence: AT)
  Receive Date: 20120326
  Receipt Date: 20150509
  Transmission Date: 20150821
  Serious: Yes (Hospitalization, Other)
  Sender: FDA-Public Use
  Company Number: AT-ROCHE-1035300

PATIENT
  Age: 42 Year
  Sex: Female
  Weight: 59 kg

DRUGS (5)
  1. VEMURAFENIB [Suspect]
     Active Substance: VEMURAFENIB
     Indication: METASTATIC MALIGNANT MELANOMA
     Dosage: LAST DOSE PRIOR TO SAE: 26/JAN/2012
     Route: 048
     Dates: start: 20120118, end: 20120127
  2. VEMURAFENIB [Suspect]
     Active Substance: VEMURAFENIB
     Dosage: LAST DOSE PRIOR TO SAE 12/MAR/2012
     Route: 048
     Dates: start: 20120216
  3. VEMURAFENIB [Suspect]
     Active Substance: VEMURAFENIB
     Dosage: LAST DOSE PRIOR TO SAE - 03/FEB/2012
     Route: 048
     Dates: start: 20120203
  4. VEMURAFENIB [Suspect]
     Active Substance: VEMURAFENIB
     Dosage: DOSE REDUCED, LAST DOSE PRIOR TO SAE - 02/FEB/2012
     Route: 048
     Dates: start: 20120127
  5. VEMURAFENIB [Suspect]
     Active Substance: VEMURAFENIB
     Dosage: DATE OF LAST DOSE PRIOR TO SAE- 15/FEB/2012
     Route: 048
     Dates: start: 20120204

REACTIONS (2)
  - Otitis externa [Recovered/Resolved]
  - Arthralgia [Recovering/Resolving]

NARRATIVE: CASE EVENT DATE: 20120124
